FAERS Safety Report 17055528 (Version 4)
Quarter: 2020Q3

REPORT INFORMATION
  Report Type: Report from Study
  Country: None (occurrence: US)
  Receive Date: 20191120
  Receipt Date: 20200828
  Transmission Date: 20201102
  Serious: Yes (Other)
  Sender: FDA-Public Use
  Company Number: US-ABBVIE-19P-163-3008715-00

PATIENT
  Age: 40 Year
  Sex: Female
  Weight: 113 kg

DRUGS (9)
  1. VENETOCLAX. [Suspect]
     Active Substance: VENETOCLAX
     Dosage: DAYS 8?14 OF CYCLE 3
     Route: 048
     Dates: start: 2019, end: 2019
  2. VENETOCLAX. [Suspect]
     Active Substance: VENETOCLAX
     Dosage: DAYS 22?28 OF CYCLE 3
     Route: 048
     Dates: start: 2019, end: 2019
  3. VENETOCLAX. [Suspect]
     Active Substance: VENETOCLAX
     Dosage: DAYS 1?28, CYCLES 4?14
     Route: 048
     Dates: start: 2019, end: 20191007
  4. OBINUTUZUMAB. [Concomitant]
     Active Substance: OBINUTUZUMAB
     Dosage: CYCLE 1 DAY 8 AND 15, CYCLE 2?4 DAY 1
     Route: 042
     Dates: start: 2019, end: 20190924
  5. OBINUTUZUMAB. [Concomitant]
     Active Substance: OBINUTUZUMAB
     Indication: CHRONIC LYMPHOCYTIC LEUKAEMIA
     Dosage: CYCLE 1 DAY 1
     Route: 042
     Dates: start: 20190627, end: 2019
  6. OBINUTUZUMAB. [Concomitant]
     Active Substance: OBINUTUZUMAB
     Dosage: CYCLE 1 DAY 2
     Route: 042
     Dates: start: 2019, end: 2019
  7. IBRUTINIB [Suspect]
     Active Substance: IBRUTINIB
     Indication: CHRONIC LYMPHOCYTIC LEUKAEMIA
     Route: 048
     Dates: start: 20190627, end: 20191007
  8. VENETOCLAX. [Suspect]
     Active Substance: VENETOCLAX
     Indication: CHRONIC LYMPHOCYTIC LEUKAEMIA
     Dosage: DAYS 1?7 OF CYCLE 3
     Route: 048
     Dates: start: 2019, end: 2019
  9. VENETOCLAX. [Suspect]
     Active Substance: VENETOCLAX
     Dosage: DAYS 15?21 OF CYCLE 3
     Route: 048
     Dates: start: 2019, end: 2019

REACTIONS (2)
  - Neutrophil count decreased [Not Recovered/Not Resolved]
  - Neutrophil count decreased [Not Recovered/Not Resolved]

NARRATIVE: CASE EVENT DATE: 20191008
